FAERS Safety Report 9513251 (Version 2)
Quarter: 2013Q3

REPORT INFORMATION
  Report Type: Spontaneous
  Country: JP (occurrence: JP)
  Receive Date: 20130910
  Receipt Date: 20130910
  Transmission Date: 20140515
  Serious: Yes (Death)
  Sender: FDA-Public Use
  Company Number: JP-ELI_LILLY_AND_COMPANY-JP201207003994

PATIENT
  Sex: Female

DRUGS (3)
  1. ADCIRCA [Suspect]
     Indication: PULMONARY ARTERIAL HYPERTENSION
     Dosage: UNK
     Route: 048
     Dates: start: 20120622, end: 20120626
  2. ADCIRCA [Suspect]
     Dosage: UNK
     Route: 048
     Dates: start: 20120627
  3. BOSENTAN [Concomitant]
     Dosage: UNK
     Route: 048

REACTIONS (1)
  - Pulmonary hypertension [Fatal]
